FAERS Safety Report 4383933-4 (Version None)
Quarter: 2004Q2

REPORT INFORMATION
  Report Type: 
  Country: None (occurrence: None)
  Receive Date: 20040624
  Receipt Date: 20040614
  Transmission Date: 20050107
  Serious: Yes (Other)
  Sender: FDA-Public Use
  Company Number: PHBS2004GB07922

PATIENT
  Age: 56 Year
  Sex: Male

DRUGS (7)
  1. CYCLOSPORINE [Suspect]
     Indication: WEGENER'S GRANULOMATOSIS
     Dosage: 100 MG, BID
     Route: 048
  2. AZATHIOPRINE [Suspect]
     Indication: WEGENER'S GRANULOMATOSIS
     Dosage: 75 MG, BID
     Route: 048
  3. PREDNISOLONE [Concomitant]
     Indication: WEGENER'S GRANULOMATOSIS
     Dosage: 25 MG, Q48H
     Route: 048
  4. METHYLPREDNISOLONE [Concomitant]
     Dosage: 1 G, ONCE/SINGLE
     Route: 042
  5. CYCLOPHOSPHAMIDE [Suspect]
     Dosage: 750 MG, ONCE/SINGLE
     Route: 042
  6. HYDROCORTISONE [Concomitant]
     Dosage: 100 MG, ONCE/SINGLE
     Route: 042
  7. HYDROCORTISONE [Concomitant]
     Dosage: 100 MG (6 AND 12 HOURS)
     Route: 048

REACTIONS (4)
  - BLOOD CREATININE INCREASED [None]
  - NEUTROPENIA [None]
  - PYREXIA [None]
  - RENAL IMPAIRMENT [None]
